FAERS Safety Report 5172571-1 (Version None)
Quarter: 2006Q4

REPORT INFORMATION
  Report Type: 
  Country: None (occurrence: None)
  Receive Date: 20061205
  Receipt Date: 20061107
  Transmission Date: 20070319
  Serious: Yes (Other)
  Sender: FDA-Public Use
  Company Number: GB-2006-034619

PATIENT
  Age: 42 Year
  Sex: Female
  Weight: 73 kg

DRUGS (1)
  1. MIRENA [Suspect]
     Dosage: 20 UG/DAY, CONT, INTRA-UTERINE
     Route: 015
     Dates: start: 20060906, end: 20061025

REACTIONS (7)
  - AGGRESSION [None]
  - ANGER [None]
  - BREAST TENDERNESS [None]
  - FATIGUE [None]
  - ONYCHOCLASIS [None]
  - POOR QUALITY SLEEP [None]
  - TRICHORRHEXIS [None]
